FAERS Safety Report 9298915 (Version 1)
Quarter: 2013Q2

REPORT INFORMATION
  Report Type: Spontaneous
  Country: US (occurrence: US)
  Receive Date: 20130520
  Receipt Date: 20130520
  Transmission Date: 20140414
  Serious: No
  Sender: FDA-Public Use
  Company Number: US-SANOFI-AVENTIS-2012SA062934

PATIENT
  Age: 40 Year
  Sex: Male

DRUGS (3)
  1. APIDRA [Suspect]
     Indication: TYPE 1 DIABETES MELLITUS
     Dosage: PRODUCT START DATE MENTIONED AS 4-5 YEARS AGO
     Route: 058
  2. LANTUS SOLOSTAR [Concomitant]
  3. SOLOSTAR [Concomitant]

REACTIONS (3)
  - Malaise [Unknown]
  - Blood glucose increased [Unknown]
  - Drug ineffective [Unknown]
